FAERS Safety Report 8260287-4 (Version None)
Quarter: 2012Q2

REPORT INFORMATION
  Report Type: 
  Country: None (occurrence: None)
  Receive Date: 20120404
  Receipt Date: 20120326
  Transmission Date: 20120825
  Serious: Yes (Other)
  Sender: FDA-Public Use
  Company Number: GB-TEVA-330961ISR

PATIENT
  Age: 58 Year
  Sex: Female

DRUGS (7)
  1. CODEINE SULFATE [Suspect]
     Indication: DIARRHOEA
     Dosage: 120 MILLIGRAM;
     Route: 048
  2. PREDNISOLONE [Concomitant]
     Indication: AUTOIMMUNE DISORDER
     Dosage: 20 MILLIGRAM;
     Route: 048
  3. CALCIUM CARBONATE [Concomitant]
     Indication: OSTEOARTHRITIS
     Route: 048
  4. PERSANTIN [Suspect]
     Indication: PROPHYLAXIS
     Dosage: 400 MILLIGRAM;
     Route: 048
     Dates: start: 20100101
  5. ASPIRIN [Concomitant]
     Indication: ANTIPLATELET THERAPY
     Dosage: 75 MILLIGRAM;
     Route: 048
  6. FOLIC ACID [Concomitant]
     Indication: FOLATE DEFICIENCY
     Dosage: 5 MILLIGRAM;
     Route: 048
  7. HYDROXOCOBALAMIN [Concomitant]
     Dosage: ONE COURSE COMPLETED

REACTIONS (2)
  - FEELING ABNORMAL [None]
  - DYSARTHRIA [None]
